FAERS Safety Report 4611070-X (Version None)
Quarter: 2005Q1

REPORT INFORMATION
  Report Type: 
  Country: None (occurrence: None)
  Receive Date: 20050316
  Receipt Date: 20050316
  Transmission Date: 20050727
  Serious: Yes (Hospitalization)
  Sender: FDA-Public Use
  Company Number: None

PATIENT
  Age: 85 Year
  Sex: Male
  Weight: 72.5755 kg

DRUGS (10)
  1. ZESTRIL [Suspect]
     Indication: HYPERTENSION
     Dosage: 10 MG PO QD
     Route: 048
  2. AMITRIPTYLINE [Concomitant]
  3. ASPIRIN [Concomitant]
  4. CODEINE [Concomitant]
  5. ETODOLAC [Concomitant]
  6. FINASTERIDE [Concomitant]
  7. HYDROCHLOROTHIAZIDE [Concomitant]
  8. GOSERELIN [Concomitant]
  9. NILUTAMIDE [Concomitant]
  10. TAMSULOSIN [Concomitant]

REACTIONS (3)
  - ANGIONEUROTIC OEDEMA [None]
  - DYSKINESIA [None]
  - SWOLLEN TONGUE [None]
